FAERS Safety Report 10516335 (Version 2)
Quarter: 2014Q4

REPORT INFORMATION
  Report Type: Spontaneous
  Country: NL (occurrence: NL)
  Receive Date: 20141014
  Receipt Date: 20141014
  Transmission Date: 20150528
  Serious: Yes (Disabling)
  Sender: FDA-Public Use
  Company Number: NL-MYLANLABS-2008S1004685

PATIENT

DRUGS (1)
  1. MERCAPTAMINE BITARTRATE [Suspect]
     Active Substance: CYSTEAMINE
     Indication: CYSTINOSIS
     Dosage: 50 MG/KG,QD

REACTIONS (3)
  - Memory impairment [Not Recovered/Not Resolved]
  - Dementia [Not Recovered/Not Resolved]
  - Mental impairment [Not Recovered/Not Resolved]
